FAERS Safety Report 21621288 (Version 5)
Quarter: 2023Q2

REPORT INFORMATION
  Report Type: Report from Study
  Country: CA (occurrence: CA)
  Receive Date: 20221121
  Receipt Date: 20230405
  Transmission Date: 20230721
  Serious: Yes (Other)
  Sender: FDA-Public Use
  Company Number: CA-GLAXOSMITHKLINE-CA2022135564

PATIENT

DRUGS (5)
  1. MEPOLIZUMAB [Suspect]
     Active Substance: MEPOLIZUMAB
     Indication: Asthma
     Dosage: 100 MG, Z, EVERY 4 WEEKS
     Route: 058
     Dates: start: 20220823
  2. MEPOLIZUMAB [Suspect]
     Active Substance: MEPOLIZUMAB
     Indication: Asthma
     Dosage: 100 MG, Z (EVERY 4 WEEKS)
     Route: 058
     Dates: start: 20220823
  3. MEPOLIZUMAB [Suspect]
     Active Substance: MEPOLIZUMAB
     Indication: Asthma
     Dosage: 100 MG, Z (EVERY 4 WEEKS)
     Route: 058
  4. ERYTHROMYCIN [Suspect]
     Active Substance: ERYTHROMYCIN
     Indication: Product used for unknown indication
     Dosage: UNK
  5. SHINGRIX [Concomitant]
     Active Substance: RECOMBINANT VARICELLA ZOSTER VIRUS (VZV) GLYCOPROTEIN E
     Indication: Product used for unknown indication
     Dosage: UNK

REACTIONS (15)
  - Rheumatoid arthritis [Not Recovered/Not Resolved]
  - Paraesthesia [Recovered/Resolved]
  - Drug hypersensitivity [Unknown]
  - Vaginal haemorrhage [Recovered/Resolved]
  - Fatigue [Not Recovered/Not Resolved]
  - Endometriosis [Not Recovered/Not Resolved]
  - Vaginal polyp [Not Recovered/Not Resolved]
  - Pain in extremity [Recovered/Resolved]
  - Cough [Unknown]
  - Oropharyngeal pain [Unknown]
  - Laryngitis [Unknown]
  - Dysphonia [Not Recovered/Not Resolved]
  - Asthma [Recovered/Resolved]
  - Influenza [Not Recovered/Not Resolved]
  - Drug ineffective [Unknown]

NARRATIVE: CASE EVENT DATE: 20220823
